FAERS Safety Report 16012477 (Version 1)
Quarter: 2019Q1

REPORT INFORMATION
  Report Type: Spontaneous
  Country: US (occurrence: US)
  Receive Date: 20190226
  Receipt Date: 20190226
  Transmission Date: 20190418
  Serious: Yes (Other)
  Sender: FDA-Public Use
  Company Number: None

PATIENT
  Age: 14 Year
  Sex: Female
  Weight: 54.45 kg

DRUGS (2)
  1. AZITHROMYCIN GENERIC FOR ZITHROMA X [Suspect]
     Active Substance: AZITHROMYCIN DIHYDRATE
     Indication: SINUSITIS
     Dosage: ?          QUANTITY:1 TABLET(S);OTHER FREQUENCY:2 FIRST DAY, 1/DAY;?
     Route: 048
     Dates: start: 20190225, end: 20190225
  2. AZITHROMYCIN GENERIC FOR ZITHROMA X [Suspect]
     Active Substance: AZITHROMYCIN DIHYDRATE
     Indication: STREPTOCOCCAL INFECTION
     Dosage: ?          QUANTITY:1 TABLET(S);OTHER FREQUENCY:2 FIRST DAY, 1/DAY;?
     Route: 048
     Dates: start: 20190225, end: 20190225

REACTIONS (3)
  - Lip pruritus [None]
  - Lip swelling [None]
  - Oral pain [None]

NARRATIVE: CASE EVENT DATE: 20190225
